FAERS Safety Report 9232257 (Version 1)
Quarter: 2013Q2

REPORT INFORMATION
  Report Type: Spontaneous
  Country: US (occurrence: US)
  Receive Date: 20130415
  Receipt Date: 20130415
  Transmission Date: 20140414
  Serious: Yes (Hospitalization)
  Sender: FDA-Public Use
  Company Number: US-009507513-1304USA003472

PATIENT
  Age: 27 Year
  Sex: Female

DRUGS (3)
  1. INTRONA [Suspect]
     Indication: MALIGNANT MELANOMA
     Dosage: 16 MILLION UNITS, MAINTENANCE PHASE
     Route: 058
     Dates: start: 20130403
  2. INTRONA [Suspect]
     Dosage: INDUCTION PHASE
     Route: 042
  3. DILAUDID [Concomitant]

REACTIONS (3)
  - Pain in extremity [Not Recovered/Not Resolved]
  - Headache [Not Recovered/Not Resolved]
  - Dehydration [Not Recovered/Not Resolved]
